FAERS Safety Report 22996804 (Version 5)
Quarter: 2023Q4

REPORT INFORMATION
  Report Type: Report from Study
  Country: CN (occurrence: None)
  Receive Date: 20230928
  Receipt Date: 20231123
  Transmission Date: 20240110
  Serious: Yes (Hospitalization)
  Sender: FDA-Public Use
  Company Number: CN-ROCHE-3427039

PATIENT
  Age: 68 Year
  Sex: Female

DRUGS (21)
  1. RITUXIMAB [Suspect]
     Active Substance: RITUXIMAB
     Indication: B-cell lymphoma
     Route: 041
     Dates: start: 20230828, end: 20230904
  2. RITUXIMAB [Suspect]
     Active Substance: RITUXIMAB
     Dosage: DAY 1,8, 15, AND 22,
     Route: 041
     Dates: start: 20230922
  3. EPCORITAMAB [Suspect]
     Active Substance: EPCORITAMAB
     Indication: B-cell lymphoma
     Dosage: PRIMING DOSE C1, D1, TOTAL; 0.8 MG INTERMEDIATE DOSE, C1, D8
     Route: 058
     Dates: start: 20230828, end: 20230828
  4. EPCORITAMAB [Suspect]
     Active Substance: EPCORITAMAB
     Dosage: 0.8 MG INTERMEDIATE DOSE
     Route: 058
     Dates: start: 20230904, end: 20230904
  5. EPCORITAMAB [Suspect]
     Active Substance: EPCORITAMAB
     Route: 058
     Dates: start: 20230922
  6. LENALIDOMIDE [Suspect]
     Active Substance: LENALIDOMIDE
     Indication: B-cell lymphoma
     Route: 048
     Dates: start: 20230828, end: 20230909
  7. LENALIDOMIDE [Suspect]
     Active Substance: LENALIDOMIDE
     Route: 048
     Dates: start: 20230929
  8. ACYCLOVIR [Concomitant]
     Active Substance: ACYCLOVIR
     Dates: start: 20230829
  9. SULFAMETHOXAZOLE [Concomitant]
     Active Substance: SULFAMETHOXAZOLE
     Dates: start: 202210
  10. PIRFENIDONE [Concomitant]
     Active Substance: PIRFENIDONE
     Route: 048
     Dates: start: 20230512
  11. ESTAZOLAM [Concomitant]
     Active Substance: ESTAZOLAM
     Indication: Insomnia
     Dates: start: 2020
  12. AONENG [Concomitant]
     Dates: start: 20230618
  13. BENZYL ALCOHOL [Concomitant]
     Active Substance: BENZYL ALCOHOL
     Indication: Hepatic steatosis
     Dates: start: 20230607
  14. FLUMETHASONE [Concomitant]
     Active Substance: FLUMETHASONE
     Dates: start: 20230618
  15. SALICYLIC ACID [Concomitant]
     Active Substance: BENZETHONIUM CHLORIDE\DEXTROMETHORPHAN HYDROBROMIDE\DYCLONINE HYDROCHLORIDE\GUAIFENESIN\SALICYLIC AC
     Dates: start: 20230323
  16. CRISABOROLE [Concomitant]
     Active Substance: CRISABOROLE
     Dates: start: 20230323
  17. CALCIUM\VITAMIN D [Concomitant]
     Active Substance: CALCIUM\VITAMIN D
     Dates: start: 202110
  18. DESLORATADINE [Concomitant]
     Active Substance: DESLORATADINE
     Dates: start: 20230618
  19. ACETAMINOPHEN [Concomitant]
     Active Substance: ACETAMINOPHEN
     Dates: start: 20230904, end: 20230904
  20. ACETAMINOPHEN [Concomitant]
     Active Substance: ACETAMINOPHEN
     Dates: start: 20230828, end: 20230908
  21. ENTECAVIR [Concomitant]
     Active Substance: ENTECAVIR
     Dates: start: 202008

REACTIONS (1)
  - Small intestinal obstruction [Recovered/Resolved]

NARRATIVE: CASE EVENT DATE: 20230908
